FAERS Safety Report 23402395 (Version 1)
Quarter: 2024Q1

REPORT INFORMATION
  Report Type: Other
  Country: US (occurrence: US)
  Receive Date: 20240115
  Receipt Date: 20240115
  Transmission Date: 20240410
  Serious: No
  Sender: FDA-Public Use
  Company Number: US-ELITEPHARMA-2023ELT00005

PATIENT
  Age: 36 Year
  Sex: Female
  Weight: 63 kg

DRUGS (2)
  1. DEXTROAMPHET SACCHARAT, AMPHET ASPARTATE, DEXTROAMPHET SULFATE AND AMP [Suspect]
     Active Substance: AMPHETAMINE ASPARTATE\AMPHETAMINE ASPARTATE MONOHYDRATE\AMPHETAMINE SULFATE\DEXTROAMPHETAMINE SACCHA
     Indication: Attention deficit hyperactivity disorder
     Dosage: 10 MG, 4X/DAY (USUALLY AT 6:30 AM, 10:30 AM, 2 PM AND 6 PM)
     Route: 048
     Dates: start: 202211, end: 202212
  2. ZOLOFT [Concomitant]
     Active Substance: SERTRALINE HYDROCHLORIDE

REACTIONS (7)
  - Fatigue [Recovered/Resolved]
  - Somnolence [Recovered/Resolved]
  - Hangover [Recovered/Resolved]
  - Drug ineffective [Recovered/Resolved]
  - Incorrect dose administered [Recovered/Resolved]
  - Product substitution issue [Recovered/Resolved]
  - Product formulation issue [Recovered/Resolved]

NARRATIVE: CASE EVENT DATE: 20220101
